FAERS Safety Report 20221376 (Version 2)
Quarter: 2022Q1

REPORT INFORMATION
  Report Type: Spontaneous
  Country: CH (occurrence: CH)
  Receive Date: 20211223
  Receipt Date: 20220104
  Transmission Date: 20220423
  Serious: Yes (Other)
  Sender: FDA-Public Use
  Company Number: CH-NOVARTISPH-NVSC2021CH291284

PATIENT

DRUGS (5)
  1. METHOTREXATE [Suspect]
     Active Substance: METHOTREXATE
     Indication: Eosinophilic fasciitis
     Dosage: UNK
     Route: 065
  2. METHOTREXATE [Suspect]
     Active Substance: METHOTREXATE
     Dosage: UNK
     Route: 065
     Dates: end: 202101
  3. PREDNISONE [Concomitant]
     Active Substance: PREDNISONE
     Indication: Eosinophilic fasciitis
     Dosage: UNK
     Route: 065
  4. PREDNISONE [Concomitant]
     Active Substance: PREDNISONE
     Dosage: 2.5 MG, QD
     Route: 065
  5. SANDIMMUNE [Concomitant]
     Active Substance: CYCLOSPORINE
     Indication: Eosinophilic fasciitis
     Dosage: 350 MG, QD (200 IN THE MORNING, 150 MG IN THE EVENING)
     Route: 065

REACTIONS (4)
  - Leukopenia [Unknown]
  - Fatigue [Unknown]
  - Lymphopenia [Unknown]
  - Product use in unapproved indication [Unknown]
